FAERS Safety Report 22781267 (Version 2)
Quarter: 2024Q1

REPORT INFORMATION
  Report Type: Report from Study
  Country: CA (occurrence: None)
  Receive Date: 20230803
  Receipt Date: 20240129
  Transmission Date: 20240410
  Serious: Yes (Hospitalization)
  Sender: FDA-Public Use
  Company Number: CA-PFIZER INC-2019484121

PATIENT
  Age: 68 Year
  Sex: Female

DRUGS (32)
  1. METHOTREXATE [Suspect]
     Active Substance: METHOTREXATE
     Indication: Product used for unknown indication
  2. METHOTREXATE [Suspect]
     Active Substance: METHOTREXATE
  3. METHOTREXATE [Suspect]
     Active Substance: METHOTREXATE
  4. COSENTYX [Suspect]
     Active Substance: SECUKINUMAB
     Indication: Psoriatic arthropathy
  5. COSENTYX [Suspect]
     Active Substance: SECUKINUMAB
     Indication: Psoriasis
  6. COSENTYX [Suspect]
     Active Substance: SECUKINUMAB
     Indication: Psoriatic arthropathy
  7. COSENTYX [Suspect]
     Active Substance: SECUKINUMAB
     Indication: Psoriasis
  8. COSENTYX [Suspect]
     Active Substance: SECUKINUMAB
     Indication: Psoriatic arthropathy
  9. COSENTYX [Suspect]
     Active Substance: SECUKINUMAB
     Indication: Psoriasis
  10. COSENTYX [Suspect]
     Active Substance: SECUKINUMAB
  11. COSENTYX [Suspect]
     Active Substance: SECUKINUMAB
  12. COSENTYX [Suspect]
     Active Substance: SECUKINUMAB
  13. COSENTYX [Suspect]
     Active Substance: SECUKINUMAB
  14. COSENTYX [Suspect]
     Active Substance: SECUKINUMAB
  15. COSENTYX [Suspect]
     Active Substance: SECUKINUMAB
  16. ADVIL [Concomitant]
     Active Substance: IBUPROFEN
  17. DESOXIMETASONE [Concomitant]
     Active Substance: DESOXIMETASONE
  18. DESOXIMETASONE [Concomitant]
     Active Substance: DESOXIMETASONE
  19. ENBREL [Concomitant]
     Active Substance: ETANERCEPT
  20. GOLD [Concomitant]
     Active Substance: GOLD
  21. HUMIRA [Concomitant]
     Active Substance: ADALIMUMAB
  22. IBUPROFEN [Concomitant]
     Active Substance: IBUPROFEN
  23. IBUPROFEN [Concomitant]
     Active Substance: IBUPROFEN
  24. IBUPROFEN [Concomitant]
     Active Substance: IBUPROFEN
  25. MELOXICAM [Concomitant]
     Active Substance: MELOXICAM
  26. NAPROXEN [Concomitant]
     Active Substance: NAPROXEN
  27. OTEZLA [Concomitant]
     Active Substance: APREMILAST
  28. PLAQUENIL [Concomitant]
     Active Substance: HYDROXYCHLOROQUINE SULFATE
  29. SULFASALAZINE [Concomitant]
     Active Substance: SULFASALAZINE
  30. SULFASALAZINE [Concomitant]
     Active Substance: SULFASALAZINE
  31. AZATHIOPRINE [Concomitant]
     Active Substance: AZATHIOPRINE
  32. HYDROXYCHLOROQUINE SULFATE [Concomitant]
     Active Substance: HYDROXYCHLOROQUINE SULFATE

REACTIONS (11)
  - Off label use [Unknown]
  - Product use issue [Unknown]
  - Product dose omission issue [Unknown]
  - Arthralgia [Unknown]
  - Fall [Unknown]
  - Mobility decreased [Unknown]
  - Pain [Unknown]
  - C-reactive protein abnormal [Unknown]
  - Inflammation [Unknown]
  - Musculoskeletal stiffness [Unknown]
  - Ankle fracture [Unknown]
